FAERS Safety Report 19657614 (Version 3)
Quarter: 2022Q3

REPORT INFORMATION
  Report Type: Other
  Country: JP (occurrence: JP)
  Receive Date: 20210804
  Receipt Date: 20220915
  Transmission Date: 20221027
  Serious: Yes (Hospitalization, Other)
  Sender: FDA-Public Use
  Company Number: JP-CHUGAI-2021007800

PATIENT
  Age: 64 Year
  Sex: Male

DRUGS (2)
  1. XELODA [Suspect]
     Active Substance: CAPECITABINE
     Indication: Rectal cancer
     Route: 048
  2. OXALIPLATIN [Concomitant]
     Active Substance: OXALIPLATIN
     Indication: Rectal cancer
     Route: 041

REACTIONS (13)
  - Gastrointestinal mucosal exfoliation [Recovering/Resolving]
  - Oesophageal mucosal dissection [Recovering/Resolving]
  - Gastrointestinal haemorrhage [Unknown]
  - Gastric ulcer [Unknown]
  - Ileal ulcer [Recovering/Resolving]
  - Dihydropyrimidine dehydrogenase deficiency [Unknown]
  - Shock haemorrhagic [Unknown]
  - Decreased appetite [Unknown]
  - Protein-losing gastroenteropathy [Unknown]
  - Febrile neutropenia [Recovering/Resolving]
  - Dehydration [Recovering/Resolving]
  - Diarrhoea [Unknown]
  - Stomatitis [Unknown]
